FAERS Safety Report 11335081 (Version 2)
Quarter: 2015Q3

REPORT INFORMATION
  Report Type: Spontaneous
  Country: US (occurrence: US)
  Receive Date: 20150804
  Receipt Date: 20150828
  Transmission Date: 20151125
  Serious: No
  Sender: FDA-Public Use
  Company Number: US-PFIZER INC-2015256971

PATIENT
  Age: 54 Year
  Sex: Female

DRUGS (2)
  1. LYRICA [Suspect]
     Active Substance: PREGABALIN
     Indication: PAIN IN EXTREMITY
     Dosage: UNK
  2. LYRICA [Suspect]
     Active Substance: PREGABALIN
     Indication: ARTHRALGIA

REACTIONS (6)
  - Therapeutic response unexpected [Unknown]
  - Intentional product misuse [Unknown]
  - Pain [Unknown]
  - Movement disorder [Unknown]
  - Intentional product use issue [Unknown]
  - Pre-existing condition improved [Unknown]
